FAERS Safety Report 9442927 (Version 4)
Quarter: 2013Q3

REPORT INFORMATION
  Report Type: Spontaneous
  Country: US (occurrence: US)
  Receive Date: 20130806
  Receipt Date: 20130830
  Transmission Date: 20140515
  Serious: Yes (Hospitalization)
  Sender: FDA-Public Use
  Company Number: US-JNJFOC-20130801763

PATIENT
  Age: 69 Year
  Sex: Female
  Weight: 40.82 kg

DRUGS (12)
  1. XARELTO [Suspect]
     Indication: CEREBROVASCULAR ACCIDENT PROPHYLAXIS
     Route: 048
     Dates: start: 20130314, end: 201306
  2. XARELTO [Suspect]
     Indication: ATRIAL FIBRILLATION
     Route: 048
     Dates: start: 20130314, end: 201306
  3. SPIRIVA [Concomitant]
     Indication: RESPIRATORY DISORDER
     Route: 065
  4. SEREVENT (SALMETEROL) [Concomitant]
     Indication: RESPIRATORY DISORDER
     Route: 065
  5. NICOTINE PATCH [Concomitant]
     Indication: EX-TOBACCO USER
     Route: 065
  6. METOPROLOL TARTRATE [Concomitant]
     Indication: HYPERTENSION
     Route: 065
  7. LISINOPRIL [Concomitant]
     Indication: HYPERTENSION
     Route: 065
  8. DORZOLAMIDE W/TIMOLOL [Concomitant]
     Indication: GLAUCOMA
     Route: 065
  9. ALPHAGAN P [Concomitant]
     Indication: GLAUCOMA
     Route: 065
  10. LASIX [Concomitant]
     Indication: HYPERTENSION
     Route: 065
  11. LASIX [Concomitant]
     Indication: DYSPNOEA
     Route: 065
  12. AMIODARONE [Concomitant]
     Route: 065
     Dates: start: 201306

REACTIONS (5)
  - Haemorrhage intracranial [Recovering/Resolving]
  - Partial seizures [Recovered/Resolved]
  - Cerebrovascular accident [Recovering/Resolving]
  - Haemoglobin decreased [Unknown]
  - Headache [Not Recovered/Not Resolved]
